FAERS Safety Report 7590622-1 (Version None)
Quarter: 2011Q3

REPORT INFORMATION
  Report Type: 
  Country: None (occurrence: None)
  Receive Date: 20110705
  Receipt Date: 20110627
  Transmission Date: 20111222
  Serious: Yes (Hospitalization)
  Sender: FDA-Public Use
  Company Number: FR-B.I. PHARMACEUTICALS,INC./RIDGEFIELD-2009-FF-00291FF

PATIENT
  Sex: Female

DRUGS (8)
  1. MODOPAR [Concomitant]
     Indication: PARKINSON'S DISEASE
     Route: 048
  2. XANAX [Concomitant]
     Dosage: 1.5 MG
     Route: 048
  3. ACETAMINOPHEN AND TRAMADOL HCL [Concomitant]
     Dosage: 37.5 MG
     Route: 048
  4. STALEVO 100 [Concomitant]
     Indication: PARKINSON'S DISEASE
     Route: 048
     Dates: end: 20101101
  5. PRAMIPEXOLE DIHYDROCHLORIDE [Suspect]
     Indication: PARKINSON'S DISEASE
     Dosage: 2.1 MG
     Route: 048
     Dates: start: 20060321, end: 20080101
  6. EFFEXOR [Concomitant]
     Dosage: THE PATIENT TOOK MORE THAN PRESCRIBED
     Route: 048
  7. IMOVANE [Concomitant]
     Dosage: 7.5 MG
     Route: 048
  8. COMTAN [Concomitant]
     Dosage: 500 MG
     Route: 048

REACTIONS (7)
  - DRUG DEPENDENCE [None]
  - ABNORMAL BEHAVIOUR [None]
  - SUICIDE ATTEMPT [None]
  - COMPULSIVE SHOPPING [None]
  - DOPAMINE DYSREGULATION SYNDROME [None]
  - PATHOLOGICAL GAMBLING [None]
  - ALCOHOLISM [None]
